FAERS Safety Report 8217578-2 (Version None)
Quarter: 2012Q1

REPORT INFORMATION
  Report Type: 
  Country: None (occurrence: None)
  Receive Date: 20120319
  Receipt Date: 20120319
  Transmission Date: 20120608
  Serious: Yes (Other)
  Sender: FDA-Public Use
  Company Number: None

PATIENT
  Age: 42 Year
  Sex: Male
  Weight: 77.11 kg

DRUGS (1)
  1. CLOSYS ANTISEPTIC ORAL RINSE [Suspect]
     Indication: DENTAL DISORDER PROPHYLAXIS
     Dosage: 2 FULL CAPS
     Route: 048
     Dates: start: 20120314, end: 20120315

REACTIONS (2)
  - DRY MOUTH [None]
  - DYSGEUSIA [None]
